FAERS Safety Report 7817123-7 (Version None)
Quarter: 2011Q4

REPORT INFORMATION
  Report Type: 
  Country: None (occurrence: None)
  Receive Date: 20111017
  Receipt Date: 20111017
  Transmission Date: 20120403
  Serious: Yes (Hospitalization)
  Sender: FDA-Public Use
  Company Number: None

PATIENT
  Age: 64 Year
  Sex: Male
  Weight: 61.9 kg

DRUGS (3)
  1. ONDANSETRON [Concomitant]
  2. DROPERIDOL [Suspect]
     Indication: VOMITING
  3. DROPERIDOL [Suspect]
     Indication: NAUSEA

REACTIONS (5)
  - BLOOD PRESSURE INCREASED [None]
  - UPPER GASTROINTESTINAL HAEMORRHAGE [None]
  - OESOPHAGEAL RUPTURE [None]
  - TACHYCARDIA [None]
  - SMALL INTESTINAL OBSTRUCTION [None]
